FAERS Safety Report 5608696-3 (Version None)
Quarter: 2008Q1

REPORT INFORMATION
  Report Type: 
  Country: None (occurrence: None)
  Receive Date: 20080131
  Receipt Date: 20080118
  Transmission Date: 20080703
  Serious: Yes (Other)
  Sender: FDA-Public Use
  Company Number: US-PFIZER INC-2008007877

PATIENT
  Sex: Female

DRUGS (2)
  1. LYRICA [Suspect]
  2. NEURONTIN [Suspect]

REACTIONS (5)
  - BREAKTHROUGH PAIN [None]
  - DYSGRAPHIA [None]
  - GAIT DISTURBANCE [None]
  - GASTRIC BYPASS [None]
  - WEIGHT INCREASED [None]
